FAERS Safety Report 5196001-9 (Version None)
Quarter: 2006Q4

REPORT INFORMATION
  Report Type: 
  Country: None (occurrence: None)
  Receive Date: 20061215
  Receipt Date: 20061208
  Transmission Date: 20070319
  Serious: Yes (Hospitalization)
  Sender: FDA-Public Use
  Company Number: GBWYE012925SEP06

PATIENT
  Age: 20 Month
  Sex: Male

DRUGS (3)
  1. REFACTO [Suspect]
     Indication: HAEMORRHAGE
     Dosage: SEE IMAGE
     Dates: start: 20060606, end: 20060606
  2. REFACTO [Suspect]
     Indication: HAEMORRHAGE
     Dosage: SEE IMAGE
     Dates: start: 20060101
  3. TRANEXAMIC ACID (TRANEXAMIC ACID) [Concomitant]

REACTIONS (2)
  - FACTOR VIII INHIBITION [None]
  - HAEMORRHAGE [None]
